FAERS Safety Report 20216775 (Version 1)
Quarter: 2021Q4

REPORT INFORMATION
  Report Type: Report from Study
  Country: BR (occurrence: BR)
  Receive Date: 20211222
  Receipt Date: 20211222
  Transmission Date: 20220303
  Serious: Yes (Other)
  Sender: FDA-Public Use
  Company Number: BR-NOVARTISPH-NVSC2021BR086464

PATIENT
  Age: 68 Year
  Sex: Male

DRUGS (4)
  1. COSENTYX [Suspect]
     Active Substance: SECUKINUMAB
     Indication: Psoriasis
     Dosage: 2 DF, QW
     Route: 058
     Dates: start: 20210101, end: 20210204
  2. COSENTYX [Suspect]
     Active Substance: SECUKINUMAB
     Dosage: 1 DF, QMO
     Route: 058
     Dates: start: 20210304
  3. COSENTYX [Suspect]
     Active Substance: SECUKINUMAB
     Dosage: 1 DF, EVERY 28 DAYS
     Route: 058
     Dates: start: 20210401
  4. COSENTYX [Suspect]
     Active Substance: SECUKINUMAB
     Dosage: 300 MG
     Route: 058
     Dates: start: 20210107

REACTIONS (11)
  - Immunodeficiency [Unknown]
  - Skin necrosis [Recovering/Resolving]
  - Pigmentation disorder [Unknown]
  - Skin depigmentation [Recovering/Resolving]
  - Nail psoriasis [Unknown]
  - Incisional hernia [Unknown]
  - Pruritus [Unknown]
  - Psoriasis [Unknown]
  - Discomfort [Unknown]
  - Skin exfoliation [Recovered/Resolved]
  - Pain [Recovered/Resolved]

NARRATIVE: CASE EVENT DATE: 20211106
